FAERS Safety Report 20485079 (Version 11)
Quarter: 2025Q4

REPORT INFORMATION
  Report Type: Report from Study
  Country: US (occurrence: US)
  Receive Date: 20220217
  Receipt Date: 20251222
  Transmission Date: 20260117
  Serious: Yes (Other)
  Sender: TAKEDA
  Company Number: US-TAKEDA-2022TUS010847

PATIENT
  Age: 20 Year
  Sex: Male

DRUGS (6)
  1. ADVATE [Suspect]
     Active Substance: ANTIHEMOPHILIC FACTOR, HUMAN RECOMBINANT
     Indication: Haemorrhage
     Dosage: 4200 INTERNATIONAL UNIT
  2. ADVATE [Suspect]
     Active Substance: ANTIHEMOPHILIC FACTOR, HUMAN RECOMBINANT
     Dosage: 4010 INTERNATIONAL UNIT
  3. ADVATE [Suspect]
     Active Substance: ANTIHEMOPHILIC FACTOR, HUMAN RECOMBINANT
     Dosage: 4050 INTERNATIONAL UNIT
  4. ADVATE [Suspect]
     Active Substance: ANTIHEMOPHILIC FACTOR, HUMAN RECOMBINANT
     Dosage: 4050 INTERNATIONAL UNIT
  5. ADVATE [Suspect]
     Active Substance: ANTIHEMOPHILIC FACTOR, HUMAN RECOMBINANT
     Dosage: 3930 INTERNATIONAL UNIT
  6. ADVATE [Suspect]
     Active Substance: ANTIHEMOPHILIC FACTOR, HUMAN RECOMBINANT
     Dosage: 3930 INTERNATIONAL UNIT

REACTIONS (12)
  - Haemarthrosis [Recovering/Resolving]
  - Haemorrhage [Recovered/Resolved]
  - Contusion [Recovering/Resolving]
  - Muscle haemorrhage [Unknown]
  - Spontaneous haemorrhage [Recovering/Resolving]
  - Fall [Unknown]
  - Swelling [Unknown]
  - Muscle strain [Unknown]
  - Blood calcium increased [Unknown]
  - Injury [Unknown]
  - Limb injury [Unknown]
  - Discomfort [Unknown]

NARRATIVE: CASE EVENT DATE: 20220201
